FAERS Safety Report 7220327-8 (Version None)
Quarter: 2011Q1

REPORT INFORMATION
  Report Type: 
  Country: None (occurrence: None)
  Receive Date: 20110111
  Receipt Date: 20110104
  Transmission Date: 20110831
  Serious: Yes (Other)
  Sender: FDA-Public Use
  Company Number: ES-PFIZER INC-2010167898

PATIENT
  Age: 43 Year
  Sex: Female

DRUGS (1)
  1. VANDRAL RETARD [Suspect]
     Dosage: 75MG IN THE MORNING AND 1MG IN THE EVENING

REACTIONS (2)
  - DRUG DEPENDENCE [None]
  - MALAISE [None]
